FAERS Safety Report 15393750 (Version 1)
Quarter: 2018Q3

REPORT INFORMATION
  Report Type: Spontaneous
  Country: US (occurrence: US)
  Receive Date: 20180917
  Receipt Date: 20180917
  Transmission Date: 20181010
  Serious: No
  Sender: FDA-Public Use
  Company Number: US-SA-2018SA256286

PATIENT

DRUGS (2)
  1. BENADRYL ALLERGY [CETIRIZINE HYDROCHLORIDE] [Concomitant]
     Indication: HYPERSENSITIVITY
     Dosage: UNK UNK, UNK
  2. ALLEGRA ALLERGY [Suspect]
     Active Substance: FEXOFENADINE HYDROCHLORIDE
     Indication: HYPERSENSITIVITY
     Dosage: UNK UNK, UNK

REACTIONS (1)
  - Drug ineffective [Unknown]
